FAERS Safety Report 8343567-3 (Version None)
Quarter: 2012Q2

REPORT INFORMATION
  Report Type: 
  Country: None (occurrence: None)
  Receive Date: 20120504
  Receipt Date: 20120502
  Transmission Date: 20120825
  Serious: No
  Sender: FDA-Public Use
  Company Number: ADR-2012-00343

PATIENT
  Sex: Male

DRUGS (2)
  1. LIORESAL [Suspect]
     Indication: TOTAL HYPOXANTHINE-GUANINE PHOSPHORIBOSYL TRANSFERASE DEFICIENCY
     Dosage: 50MCG/DAY
     Route: 037
  2. LIORESAL [Suspect]
     Indication: DYSTONIA
     Dosage: 50MCG/DAY
     Route: 037

REACTIONS (5)
  - SELF INJURIOUS BEHAVIOUR [None]
  - IMPLANT SITE INFECTION [None]
  - STAPHYLOCOCCUS TEST POSITIVE [None]
  - CULTURE POSITIVE [None]
  - OPEN WOUND [None]
